FAERS Safety Report 19578052 (Version 1)
Quarter: 2021Q3

REPORT INFORMATION
  Report Type: Spontaneous
  Country: CN (occurrence: CN)
  Receive Date: 20210719
  Receipt Date: 20210719
  Transmission Date: 20211014
  Serious: Yes (Death, Hospitalization, Other)
  Sender: FDA-Public Use
  Company Number: CN-LUPIN PHARMACEUTICALS INC.-2021-12165

PATIENT
  Age: 65 Year
  Sex: Male

DRUGS (7)
  1. METHYLPREDNISOLONE. [Suspect]
     Active Substance: METHYLPREDNISOLONE
     Indication: IMMUNOSUPPRESSANT DRUG THERAPY
     Dosage: 20 MILLIGRAM, QD
     Route: 065
  2. CAMRELIZUMAB [Concomitant]
     Active Substance: CAMRELIZUMAB
     Indication: OESOPHAGEAL SQUAMOUS CELL CARCINOMA
     Dosage: 200 MILLIGRAM
     Route: 065
  3. CAMRELIZUMAB [Concomitant]
     Active Substance: CAMRELIZUMAB
     Indication: METASTASES TO LYMPH NODES
  4. METHYLPREDNISOLONE. [Suspect]
     Active Substance: METHYLPREDNISOLONE
     Dosage: 40 MILLIGRAM, QD
     Route: 065
  5. METHYLPREDNISOLONE. [Suspect]
     Active Substance: METHYLPREDNISOLONE
     Dosage: 80 MILLIGRAM, QD
     Route: 065
  6. MYCOPHENOLATE MOFETIL. [Suspect]
     Active Substance: MYCOPHENOLATE MOFETIL
     Indication: IMMUNOSUPPRESSANT DRUG THERAPY
     Dosage: 2 GRAM, QD
     Route: 065
  7. URSODEOXYCHOLIC ACID [Suspect]
     Active Substance: URSODIOL
     Indication: IMMUNE-MEDIATED CHOLESTASIS
     Dosage: 25 MILLIGRAM/KILOGRAM, QD
     Route: 065

REACTIONS (2)
  - Opportunistic infection [Fatal]
  - Sepsis [Fatal]
